FAERS Safety Report 8328116-8 (Version None)
Quarter: 2012Q2

REPORT INFORMATION
  Report Type: 
  Country: None (occurrence: None)
  Receive Date: 20120502
  Receipt Date: 20120426
  Transmission Date: 20120825
  Serious: Yes (Other)
  Sender: FDA-Public Use
  Company Number: PHHY2012JP025097

PATIENT
  Age: 52 Year
  Sex: Female

DRUGS (2)
  1. FEMARA [Suspect]
     Indication: BREAST CANCER
     Dosage: 2.5 MG DAILY
     Route: 048
     Dates: start: 20120321, end: 20120403
  2. NOLVADEX [Concomitant]
     Dosage: 20 MG, UNK
     Route: 048
     Dates: start: 20111025, end: 20120110

REACTIONS (7)
  - EYE PAIN [None]
  - INTRAOCULAR PRESSURE INCREASED [None]
  - INSOMNIA [None]
  - TINNITUS [None]
  - ARTHRALGIA [None]
  - GLAUCOMA [None]
  - HYPERTHERMIA [None]
